FAERS Safety Report 6886496-4 (Version None)
Quarter: 2010Q3

REPORT INFORMATION
  Report Type: 
  Country: None (occurrence: None)
  Receive Date: 20100730
  Receipt Date: 20100722
  Transmission Date: 20110219
  Serious: Yes (Hospitalization)
  Sender: FDA-Public Use
  Company Number: US-BIOGENIDEC-2010BI024633

PATIENT
  Age: 59 Year
  Sex: Female
  Weight: 104 kg

DRUGS (9)
  1. TYSABRI [Suspect]
     Indication: MULTIPLE SCLEROSIS
     Route: 042
     Dates: start: 20090311
  2. AMBIEN [Concomitant]
     Route: 048
  3. ASPIRIN [Concomitant]
  4. DEPAKOTE [Concomitant]
     Route: 048
  5. LOVASTATIN [Concomitant]
     Route: 048
  6. PAXIL [Concomitant]
     Route: 048
  7. AMPYRA [Concomitant]
     Route: 048
  8. ATENOLOL [Concomitant]
     Route: 048
     Dates: end: 20100701
  9. ATENOLOL [Concomitant]
     Route: 048
     Dates: start: 20100715

REACTIONS (14)
  - ARTHRALGIA [None]
  - BLOOD CALCIUM DECREASED [None]
  - BLOOD GLUCOSE INCREASED [None]
  - BRADYCARDIA [None]
  - CARDIOMEGALY [None]
  - EOSINOPHIL PERCENTAGE INCREASED [None]
  - GLYCOSYLATED HAEMOGLOBIN INCREASED [None]
  - MEAN CELL HAEMOGLOBIN INCREASED [None]
  - MYOGLOBIN BLOOD INCREASED [None]
  - PULMONARY VASCULAR DISORDER [None]
  - RED BLOOD CELL COUNT DECREASED [None]
  - RED CELL DISTRIBUTION WIDTH INCREASED [None]
  - SYNCOPE [None]
  - X-RAY LIMB ABNORMAL [None]
